FAERS Safety Report 9025379 (Version 1)
Quarter: 2013Q1

REPORT INFORMATION
  Report Type: Spontaneous
  Country: FR (occurrence: FR)
  Receive Date: 20130122
  Receipt Date: 20130122
  Transmission Date: 20140127
  Serious: Yes (Other)
  Sender: FDA-Public Use
  Company Number: FR-PFIZER INC-2013023221

PATIENT
  Age: 53 Year
  Sex: Female

DRUGS (3)
  1. LYRICA [Suspect]
     Indication: PERIARTHRITIS
     Dosage: 25 MG IN MORNING, 50 MG IN EVENING
     Route: 048
     Dates: start: 200912
  2. LYRICA [Suspect]
     Dosage: 50 MG IN MORNING, 75 MG IN EVENING
     Route: 048
  3. LYRICA [Suspect]
     Dosage: 75 MG IN MORNING, 150 MG IN EVENING
     Route: 048
     Dates: end: 20120227

REACTIONS (16)
  - Visual impairment [Recovered/Resolved]
  - Visual acuity reduced [Recovered/Resolved]
  - Diplopia [Recovered/Resolved]
  - Eye pain [Not Recovered/Not Resolved]
  - Fatigue [Recovered/Resolved]
  - Headache [Recovered/Resolved]
  - Libido decreased [Recovered/Resolved]
  - Expressive language disorder [Recovered/Resolved]
  - Vertigo [Recovered/Resolved]
  - Depression [Recovered/Resolved]
  - Vision blurred [Recovered/Resolved]
  - Lacrimation increased [Recovered/Resolved]
  - Tendonitis [Unknown]
  - Asthenia [Recovered/Resolved]
  - Extraocular muscle paresis [Recovered/Resolved]
  - Pain [Recovered/Resolved]
